FAERS Safety Report 12410973 (Version 2)
Quarter: 2016Q4

REPORT INFORMATION
  Report Type: Other
  Country: JP (occurrence: JP)
  Receive Date: 20160527
  Receipt Date: 20161128
  Transmission Date: 20170207
  Serious: No
  Sender: FDA-Public Use
  Company Number: JP-LUPIN PHARMACEUTICALS INC.-2016-02024

PATIENT
  Age: 65 Year
  Sex: Male

DRUGS (4)
  1. PRAVASTATIN SODIUM TABLETS USP 10MG [Suspect]
     Active Substance: PRAVASTATIN SODIUM
     Indication: BLOOD CHOLESTEROL INCREASED
     Route: 048
     Dates: start: 20150505, end: 20150506
  2. GLIMEPIRIDE. [Concomitant]
     Active Substance: GLIMEPIRIDE
     Indication: DIABETES MELLITUS
     Route: 048
     Dates: start: 201403
  3. PRAVASTATIN SODIUM TABLETS USP 10MG [Suspect]
     Active Substance: PRAVASTATIN SODIUM
     Indication: HYPERTENSION
     Route: 048
     Dates: start: 20150430, end: 20150502
  4. TSUMURA [Concomitant]
     Indication: MYALGIA
     Route: 048

REACTIONS (1)
  - Myalgia [Recovered/Resolved]

NARRATIVE: CASE EVENT DATE: 20150502
